FAERS Safety Report 8393028-0 (Version None)
Quarter: 2012Q2

REPORT INFORMATION
  Report Type: 
  Country: None (occurrence: None)
  Receive Date: 20120529
  Receipt Date: 20120321
  Transmission Date: 20120825
  Serious: No
  Sender: FDA-Public Use
  Company Number: US-ABBOTT-12P-163-0918228-00

PATIENT
  Sex: Male
  Weight: 104.42 kg

DRUGS (11)
  1. EFFEXOR [Concomitant]
     Indication: HEADACHE
  2. ASPIRIN [Concomitant]
     Indication: CARDIAC DISORDER
  3. VASOTEC [Concomitant]
     Indication: BLOOD PRESSURE
  4. NOVOLOG [Concomitant]
     Indication: DIABETES MELLITUS
  5. ANDROGEL [Suspect]
     Indication: BLOOD TESTOSTERONE DECREASED
     Route: 061
     Dates: start: 20110101
  6. BYETTA [Concomitant]
     Indication: DIABETES MELLITUS
  7. LIPITOR [Concomitant]
     Indication: BLOOD CHOLESTEROL
  8. TOPROL-XL [Concomitant]
     Indication: BLOOD PRESSURE
  9. SEROQUEL [Concomitant]
     Indication: HEAD INJURY
  10. TRICOR [Concomitant]
     Indication: BLOOD TRIGLYCERIDES
  11. ZETIA [Concomitant]
     Indication: BLOOD CHOLESTEROL

REACTIONS (4)
  - DRUG ADMINISTERED AT INAPPROPRIATE SITE [None]
  - MYALGIA [None]
  - MUSCLE SPASMS [None]
  - BLOOD TESTOSTERONE DECREASED [None]
